FAERS Safety Report 13980442 (Version 9)
Quarter: 2018Q2

REPORT INFORMATION
  Report Type: Report from Study
  Country: JP (occurrence: JP)
  Receive Date: 20170918
  Receipt Date: 20180501
  Transmission Date: 20180711
  Serious: Yes (Hospitalization)
  Sender: FDA-Public Use
  Company Number: JP-CONCORDIA PHARMACEUTICALS INC.-GSH201709-005130

PATIENT
  Age: 41 Year
  Sex: Female

DRUGS (2)
  1. PLAQUENIL [Suspect]
     Active Substance: HYDROXYCHLOROQUINE SULFATE
     Indication: SYSTEMIC LUPUS ERYTHEMATOSUS
     Dosage: 200 MG (1 TABLET) DAILY AND 400 MG (2 TABLETS) DAILY, ALTERNATELY
     Route: 048
     Dates: start: 20160905, end: 20170221
  2. PREDONINE [Concomitant]
     Active Substance: PREDNISOLONE
     Dates: start: 2015, end: 2016

REACTIONS (2)
  - Rash [Recovered/Resolved]
  - Retinal detachment [Recovered/Resolved]

NARRATIVE: CASE EVENT DATE: 20161114
